FAERS Safety Report 13769431 (Version 1)
Quarter: 2017Q3

REPORT INFORMATION
  Report Type: Report from Study
  Country: US (occurrence: BR)
  Receive Date: 20170719
  Receipt Date: 20170719
  Transmission Date: 20171127
  Serious: Yes (Life-Threatening, Other)
  Sender: FDA-Public Use
  Company Number: US-SUNOVION-2017SUN003082

PATIENT
  Sex: Female
  Weight: 58 kg

DRUGS (1)
  1. INDACATEROL AND GLYCOPYRROLATE [Suspect]
     Active Substance: GLYCOPYRROLATE\INDACATEROL MALEATE
     Indication: ASTHMA
     Dosage: (INDACATEROL 110 UG / GLYCOPYRRONIUM 50 UG), QD
     Route: 055

REACTIONS (4)
  - Apparent death [Unknown]
  - Fall [Unknown]
  - Product use in unapproved indication [Unknown]
  - Upper limb fracture [Unknown]
